FAERS Safety Report 24392198 (Version 1)
Quarter: 2024Q4

REPORT INFORMATION
  Report Type: Spontaneous
  Country: US (occurrence: US)
  Receive Date: 20241003
  Receipt Date: 20241003
  Transmission Date: 20250115
  Serious: No
  Sender: ABBVIE
  Company Number: US-ABBVIE-5946122

PATIENT
  Sex: Female

DRUGS (3)
  1. UBRELVY [Suspect]
     Active Substance: UBROGEPANT
     Indication: Migraine
     Dosage: TIME INTERVAL: AS NECESSARY
     Route: 048
     Dates: start: 2023, end: 202407
  2. AJOVY [Suspect]
     Active Substance: FREMANEZUMAB-VFRM
     Indication: Migraine prophylaxis
     Route: 065
     Dates: start: 2024, end: 20240801
  3. TIMOLOL [Suspect]
     Active Substance: TIMOLOL\TIMOLOL MALEATE
     Indication: Migraine
     Dosage: TIME INTERVAL: AS NECESSARY
     Route: 050
     Dates: start: 2024, end: 202406

REACTIONS (1)
  - Maternal exposure before pregnancy [Unknown]
